FAERS Safety Report 4353357-4 (Version None)
Quarter: 2004Q2

REPORT INFORMATION
  Report Type: 
  Country: None (occurrence: None)
  Receive Date: 20040505
  Receipt Date: 20040427
  Transmission Date: 20050107
  Serious: Yes (Death)
  Sender: FDA-Public Use
  Company Number: US-JNJFOC-20040300650

PATIENT
  Sex: Male
  Weight: 68.04 kg

DRUGS (6)
  1. RISPERDAL [Suspect]
     Indication: AGITATION
     Route: 049
  2. LASIX [Concomitant]
  3. ACCUPRIL [Concomitant]
  4. ARICEPT [Concomitant]
  5. MEGACE [Concomitant]
  6. ASPIRIN [Concomitant]

REACTIONS (1)
  - DEATH [None]
